FAERS Safety Report 8798710 (Version 1)
Quarter: 2012Q4

REPORT INFORMATION
  Report Type: Spontaneous
  Country: US (occurrence: None)
  Receive Date: 20120914
  Receipt Date: 20120914
  Transmission Date: 20130627
  Serious: Yes (Life-Threatening, Hospitalization)
  Sender: FDA-Public Use
  Company Number: INT_00119_2012

PATIENT
  Age: 54 Year
  Sex: Male

DRUGS (1)
  1. CEFAZOLIN [Suspect]
     Indication: ANTIBIOTIC PROPHYLAXIS
     Route: 042

REACTIONS (5)
  - Cardio-respiratory arrest [None]
  - Ventricular tachycardia [None]
  - Ventricular fibrillation [None]
  - Myocardial infarction [None]
  - Hypersensitivity [None]
